FAERS Safety Report 9973218 (Version 2)
Quarter: 2014Q1

REPORT INFORMATION
  Report Type: Report from Study
  Country: US (occurrence: US)
  Receive Date: 20140306
  Receipt Date: 20140306
  Transmission Date: 20141002
  Serious: Yes (Hospitalization)
  Sender: FDA-Public Use
  Company Number: US-ABBVIE-13P-163-1144958-00

PATIENT
  Age: 82 Year
  Sex: Male

DRUGS (10)
  1. HUMIRA [Suspect]
     Indication: COLITIS ULCERATIVE
     Dosage: EVERY OTHER FRIDAY
     Route: 058
     Dates: start: 20130726
  2. APRISO [Concomitant]
     Indication: COLITIS ULCERATIVE
  3. FUROSEMIDE [Concomitant]
     Indication: CARDIAC FAILURE CONGESTIVE
  4. LEVOTHYROXINE [Concomitant]
     Indication: THYROID DISORDER
  5. PREDNISONE [Concomitant]
     Indication: COLITIS ULCERATIVE
  6. TAMSULON [Concomitant]
     Indication: PROSTATIC DISORDER
  7. FINASTERIDE [Concomitant]
     Indication: PROSTATIC DISORDER
  8. CITALOPRAM [Concomitant]
     Indication: DEPRESSION
  9. METOPROLOL [Concomitant]
     Indication: PRODUCT USED FOR UNKNOWN INDICATION
  10. UNKNOWN DIARRHEA MEDICATION [Concomitant]
     Indication: DIARRHOEA

REACTIONS (2)
  - Diarrhoea [Not Recovered/Not Resolved]
  - Drug ineffective [Recovering/Resolving]
